FAERS Safety Report 17080156 (Version 1)
Quarter: 2019Q4

REPORT INFORMATION
  Report Type: Spontaneous
  Country: AU (occurrence: AU)
  Receive Date: 20191126
  Receipt Date: 20191126
  Transmission Date: 20200122
  Serious: No
  Sender: FDA-Public Use
  Company Number: None

PATIENT
  Age: 36 Year
  Sex: Female
  Weight: 76 kg

DRUGS (2)
  1. EPIDUO FORTE [Suspect]
     Active Substance: ADAPALENE\BENZOYL PEROXIDE
     Indication: ACNE
     Dosage: ?          QUANTITY:1 1;?
     Route: 061
     Dates: start: 20191123, end: 20191126
  2. MALTOFER IRON [Concomitant]

REACTIONS (5)
  - Pain [None]
  - Rash [None]
  - Swelling face [None]
  - Skin erosion [None]
  - Skin burning sensation [None]

NARRATIVE: CASE EVENT DATE: 20191126
